FAERS Safety Report 7702681-3 (Version None)
Quarter: 2011Q3

REPORT INFORMATION
  Report Type: 
  Country: None (occurrence: None)
  Receive Date: 20110817
  Receipt Date: 20110802
  Transmission Date: 20111222
  Serious: Yes (Other)
  Sender: FDA-Public Use
  Company Number: B0738575A

PATIENT
  Age: 18 Year
  Sex: Female

DRUGS (4)
  1. BUPROPION HYDROCHLORIDE [Concomitant]
  2. LAMOTRIGINE [Suspect]
  3. EYE MEDICATION (UNSPEC.) [Concomitant]
  4. ARIPIPRAZOLE [Concomitant]

REACTIONS (10)
  - EYE IRRITATION [None]
  - SEBACEOUS GLAND DISORDER [None]
  - DISEASE COMPLICATION [None]
  - SKIN LESION [None]
  - SKIN HYPOPIGMENTATION [None]
  - PAPULE [None]
  - NAIL DISORDER [None]
  - ONYCHOLYSIS [None]
  - STEVENS-JOHNSON SYNDROME [None]
  - SKIN PLAQUE [None]
